FAERS Safety Report 6063960-1 (Version None)
Quarter: 2009Q1

REPORT INFORMATION
  Report Type: 
  Country: None (occurrence: None)
  Receive Date: 20090204
  Receipt Date: 20090131
  Transmission Date: 20090719
  Serious: Yes (Death, Hospitalization)
  Sender: FDA-Public Use
  Company Number: PHHY2009BR03591

PATIENT
  Age: 73 Year
  Sex: Male

DRUGS (3)
  1. FORASEQ [Suspect]
     Indication: EMPHYSEMA
     Dosage: UNK
  2. TEOLONG [Concomitant]
     Indication: EMPHYSEMA
     Dosage: UNK
     Route: 048
  3. RENITEC [Concomitant]
     Indication: HYPERTENSION
     Dosage: UNK
     Route: 048

REACTIONS (6)
  - DYSPNOEA [None]
  - EMPHYSEMA [None]
  - HAEMODIALYSIS [None]
  - RENAL FAILURE [None]
  - TRACHEOSTOMY [None]
  - TRANSFUSION [None]
